FAERS Safety Report 19191221 (Version 1)
Quarter: 2021Q2

REPORT INFORMATION
  Report Type: Report from Study
  Country: US (occurrence: US)
  Receive Date: 20210428
  Receipt Date: 20210428
  Transmission Date: 20210717
  Serious: Yes (Hospitalization, Other)
  Sender: FDA-Public Use
  Company Number: US-PRINSTON PHARMACEUTICAL INC.-2021PRN00144

PATIENT
  Age: 71 Year
  Sex: Female

DRUGS (30)
  1. SPARSENTAN. [Suspect]
     Active Substance: SPARSENTAN
     Indication: GLOMERULOSCLEROSIS
     Dosage: 800 MG, 1X/DAY
     Route: 048
     Dates: start: 20191231
  2. SPARSENTAN. [Suspect]
     Active Substance: SPARSENTAN
     Dosage: 400 MG, 1X/DAY
     Route: 048
     Dates: start: 20191216, end: 20191230
  3. ATORVASTATIN [Concomitant]
     Active Substance: ATORVASTATIN
  4. FERROUS SULFATE. [Concomitant]
     Active Substance: FERROUS SULFATE
  5. DIFLUCAN [Concomitant]
     Active Substance: FLUCONAZOLE
  6. HELIOCARE [Concomitant]
  7. BUMETANIDE. [Concomitant]
     Active Substance: BUMETANIDE
  8. METOLAZONE. [Concomitant]
     Active Substance: METOLAZONE
  9. FISH OIL [Concomitant]
     Active Substance: FISH OIL
  10. CITRA CAL + D [Concomitant]
  11. IRBESARTAN. [Suspect]
     Active Substance: IRBESARTAN
     Indication: GLOMERULOSCLEROSIS
     Dosage: 300 MG, 1X/DAY
     Route: 048
     Dates: start: 20191231, end: 2021
  12. FLOVENT HFA [Concomitant]
     Active Substance: FLUTICASONE PROPIONATE
  13. NITROFURANTOIN MONOHYDRATE MACROCRYSTALS [Concomitant]
     Active Substance: NITROFURANTOIN\NITROFURANTOIN MONOHYDRATE
  14. CALCITRIOL. [Concomitant]
     Active Substance: CALCITRIOL
  15. BIOTIN [Concomitant]
     Active Substance: BIOTIN
  16. VITAMIN B12 [Concomitant]
     Active Substance: CYANOCOBALAMIN
  17. ZYRTEC [Concomitant]
     Active Substance: CETIRIZINE HYDROCHLORIDE
  18. PROVENTIL HFA [Concomitant]
     Active Substance: ALBUTEROL SULFATE
  19. IRBESARTAN. [Suspect]
     Active Substance: IRBESARTAN
     Dosage: 150 MG, 1X/DAY
     Route: 048
     Dates: start: 20191216, end: 20191230
  20. DICALCIUM PHOSPHATE [Concomitant]
  21. CALCIUM CITRATE [Concomitant]
     Active Substance: CALCIUM CITRATE
  22. CELLCEPT [Concomitant]
     Active Substance: MYCOPHENOLATE MOFETIL\MYCOPHENOLATE MOFETIL HYDROCHLORIDE
  23. ZINC. [Concomitant]
     Active Substance: ZINC
  24. ELIQUIS [Concomitant]
     Active Substance: APIXABAN
  25. HA JOINT [Concomitant]
  26. MAGNESIUM [Concomitant]
     Active Substance: MAGNESIUM
  27. PRESERVISION AREDS [Concomitant]
     Active Substance: MINERALS\VITAMINS
  28. PROCRIT [Concomitant]
     Active Substance: ERYTHROPOIETIN
  29. ACIDOPHILUS PROBIOTIC [Concomitant]
     Active Substance: LACTOBACILLUS ACIDOPHILUS
  30. SEVELAMER CARBONATE. [Concomitant]
     Active Substance: SEVELAMER CARBONATE

REACTIONS (13)
  - Encephalopathy [Recovered/Resolved]
  - End stage renal disease [Recovered/Resolved]
  - Urinary tract infection [Not Recovered/Not Resolved]
  - Hypophosphataemia [Not Recovered/Not Resolved]
  - Escherichia urinary tract infection [Recovered/Resolved]
  - Brain natriuretic peptide increased [Recovered/Resolved]
  - Urinary tract infection [Recovered/Resolved]
  - Hyperkalaemia [Recovered/Resolved]
  - Blood creatine phosphokinase increased [Recovered/Resolved]
  - Anaemia [Recovered/Resolved]
  - Escherichia bacteraemia [Recovered/Resolved]
  - Vitamin D deficiency [Not Recovered/Not Resolved]
  - Skin candida [Not Recovered/Not Resolved]

NARRATIVE: CASE EVENT DATE: 20200113
